FAERS Safety Report 15806122 (Version 1)
Quarter: 2019Q1

REPORT INFORMATION
  Report Type: Spontaneous
  Country: US (occurrence: US)
  Receive Date: 20190110
  Receipt Date: 20190110
  Transmission Date: 20190417
  Serious: Yes (Other)
  Sender: FDA-Public Use
  Company Number: US-BAYER-2019-007325

PATIENT
  Age: 75 Year
  Sex: Female

DRUGS (1)
  1. GADAVIST [Suspect]
     Active Substance: GADOBUTROL
     Indication: NUCLEAR MAGNETIC RESONANCE IMAGING
     Dosage: UNK UNK, ONCE
     Route: 040
     Dates: start: 20181019

REACTIONS (3)
  - Syncope [None]
  - Nausea [None]
  - Flushing [None]

NARRATIVE: CASE EVENT DATE: 20181019
